FAERS Safety Report 13594648 (Version 8)
Quarter: 2017Q3

REPORT INFORMATION
  Report Type: Report from Study
  Country: CA (occurrence: CA)
  Receive Date: 20170530
  Receipt Date: 20170918
  Transmission Date: 20171127
  Serious: Yes (Death, Hospitalization, Other)
  Sender: FDA-Public Use
  Company Number: CA-ROCHE-1939088

PATIENT
  Age: 74 Year
  Sex: Male

DRUGS (14)
  1. FERROUS FUMARATE [Concomitant]
     Active Substance: FERROUS FUMARATE
  2. TAMULOSIN [Concomitant]
     Active Substance: TAMSULOSIN
  3. PANTOPRAZOLE [Concomitant]
     Active Substance: PANTOPRAZOLE
  4. GLICLAZIDE [Concomitant]
     Active Substance: GLICLAZIDE
  5. VIMPAT [Concomitant]
     Active Substance: LACOSAMIDE
  6. FUROSEMIDE. [Concomitant]
     Active Substance: FUROSEMIDE
  7. SENOKOT [Concomitant]
     Active Substance: SENNOSIDES
  8. ESBRIET [Suspect]
     Active Substance: PIRFENIDONE
     Indication: IDIOPATHIC PULMONARY FIBROSIS
     Route: 048
     Dates: start: 20170509, end: 20170630
  9. SOFLAX (CANADA) [Concomitant]
  10. GABAPENTIN. [Concomitant]
     Active Substance: GABAPENTIN
  11. CRESTOR [Concomitant]
     Active Substance: ROSUVASTATIN CALCIUM
  12. JANUMET [Concomitant]
     Active Substance: METFORMIN HYDROCHLORIDE\SITAGLIPTIN PHOSPHATE
  13. CELECOXIB. [Concomitant]
     Active Substance: CELECOXIB
  14. COVERSYL [Concomitant]
     Active Substance: PERINDOPRIL

REACTIONS (10)
  - Myocardial infarction [Unknown]
  - Wheezing [Recovering/Resolving]
  - Death [Fatal]
  - Vomiting [Unknown]
  - Renal failure [Not Recovered/Not Resolved]
  - Malaise [Recovering/Resolving]
  - Malaise [Unknown]
  - Nausea [Unknown]
  - Nasopharyngitis [Not Recovered/Not Resolved]
  - Haemoptysis [Recovering/Resolving]

NARRATIVE: CASE EVENT DATE: 201707
